FAERS Safety Report 23603133 (Version 1)
Quarter: 2024Q1

REPORT INFORMATION
  Report Type: Report from Study
  Country: CH (occurrence: CH)
  Receive Date: 20240306
  Receipt Date: 20240306
  Transmission Date: 20240410
  Serious: Yes (Hospitalization)
  Sender: FDA-Public Use
  Company Number: CH-ABBVIE-5668111

PATIENT
  Age: 75 Year
  Sex: Male

DRUGS (4)
  1. CARBIDOPA\LEVODOPA [Suspect]
     Active Substance: CARBIDOPA\LEVODOPA
     Indication: Parkinson^s disease
     Dosage: MD: 5.0ML, CRD: 3.1 ML/H, ED: 1.00 ML, CRN: 2.1ML/H?FREQUENCY TEXT: 24H THERAPY
     Route: 050
     Dates: start: 20230827
  2. CARBIDOPA\LEVODOPA [Suspect]
     Active Substance: CARBIDOPA\LEVODOPA
     Dosage: MD: 5.0ML, CRD: 2.5 ML/H, ED: 1.00 ML, CRN: 2.0ML/H?FREQUENCY TEXT: 24H THERAPY
     Route: 050
     Dates: start: 20221230, end: 20230418
  3. CARBIDOPA\LEVODOPA [Suspect]
     Active Substance: CARBIDOPA\LEVODOPA
     Dosage: MD: 5.0ML, CRD: 2.7 ML/H, ED: 1.00 ML, CRN: 2.0ML/H?FREQUENCY TEXT: 24H THERAPY
     Route: 050
     Dates: start: 20230418, end: 20230827
  4. CARBIDOPA\LEVODOPA [Suspect]
     Active Substance: CARBIDOPA\LEVODOPA
     Route: 050
     Dates: start: 20201214

REACTIONS (2)
  - Stoma closure [Recovered/Resolved]
  - Embedded device [Recovered/Resolved]

NARRATIVE: CASE EVENT DATE: 20240304
